FAERS Safety Report 14410541 (Version 8)
Quarter: 2022Q2

REPORT INFORMATION
  Report Type: Spontaneous
  Country: US (occurrence: US)
  Receive Date: 20180119
  Receipt Date: 20220429
  Transmission Date: 20220720
  Serious: Yes (Hospitalization, Other)
  Sender: FDA-Public Use
  Company Number: PHEH2018US001314

PATIENT
  Age: 6 Year
  Sex: Male
  Weight: 16.7 kg

DRUGS (5)
  1. KYMRIAH [Suspect]
     Active Substance: TISAGENLECLEUCEL
     Indication: Acute lymphocytic leukaemia recurrent
     Dosage: UNK UNK, ONCE/SINGLE
     Route: 042
     Dates: start: 20180103
  2. CLINDAMYCIN [Concomitant]
     Active Substance: CLINDAMYCIN
     Indication: Neutropenia
     Dosage: 13 MG/KG, Q8H
     Route: 042
  3. CEFEPIME [Concomitant]
     Active Substance: CEFEPIME HYDROCHLORIDE
     Indication: Neutropenia
     Dosage: 50 MG/KG, Q8H
     Route: 042
  4. MICAFUNGIN [Concomitant]
     Active Substance: MICAFUNGIN
     Indication: Neutropenia
     Dosage: 1 MG/KG, Q12H
     Route: 042
  5. LEVETIRACETAM [Concomitant]
     Active Substance: LEVETIRACETAM
     Indication: Seizure prophylaxis
     Dosage: 10 MG/KG, BID
     Route: 042

REACTIONS (13)
  - Cytokine release syndrome [Recovered/Resolved]
  - Delirium [Unknown]
  - Pyrexia [Unknown]
  - Hypotension [Unknown]
  - Headache [Unknown]
  - C-reactive protein increased [Unknown]
  - Red blood cell sedimentation rate increased [Unknown]
  - Serum ferritin increased [Unknown]
  - Encephalopathy [Recovered/Resolved]
  - Confusional state [Unknown]
  - Tachycardia [Unknown]
  - Tachypnoea [Unknown]
  - Post-depletion B-cell recovery [Not Recovered/Not Resolved]

NARRATIVE: CASE EVENT DATE: 20180108
